FAERS Safety Report 9683537 (Version 2)
Quarter: 2013Q4

REPORT INFORMATION
  Report Type: Spontaneous
  Country: US (occurrence: US)
  Receive Date: 20131112
  Receipt Date: 20131114
  Transmission Date: 20140711
  Serious: Yes (Other)
  Sender: FDA-Public Use
  Company Number: US-TEVA-443404USA

PATIENT
  Age: 39 Year
  Sex: Female
  Weight: 49.94 kg

DRUGS (2)
  1. PARAGARD 380A [Suspect]
     Indication: CONTRACEPTION
     Route: 015
     Dates: start: 200707, end: 20131105
  2. LEVOTHYROXINE [Concomitant]
     Indication: HYPOTHYROIDISM
     Dosage: 100 MICROGRAM DAILY;
     Route: 048

REACTIONS (3)
  - Device breakage [Not Recovered/Not Resolved]
  - Medical device complication [Not Recovered/Not Resolved]
  - Muscle spasms [Unknown]
